FAERS Safety Report 4588577-7 (Version None)
Quarter: 2005Q1

REPORT INFORMATION
  Report Type: 
  Country: None (occurrence: None)
  Receive Date: 20050214
  Receipt Date: 20050214
  Transmission Date: 20050727
  Serious: Yes (Life-Threatening, Disabling, Congenital Anomaly)
  Sender: FDA-Public Use
  Company Number: None

PATIENT
  Age: 41 Year
  Sex: Male
  Weight: 63.5036 kg

DRUGS (1)
  1. ENBREL [Suspect]
     Indication: PSORIATIC ARTHROPATHY
     Dosage: 25MG  2XA WK   INTRAMUSCU
     Route: 030
     Dates: start: 20000803, end: 20001003

REACTIONS (4)
  - DYSPNOEA [None]
  - OFF LABEL USE [None]
  - SKIN LESION [None]
  - STOMATITIS [None]
